FAERS Safety Report 15284035 (Version 2)
Quarter: 2018Q3

REPORT INFORMATION
  Report Type: Spontaneous
  Country: LV (occurrence: LV)
  Receive Date: 20180816
  Receipt Date: 20180824
  Transmission Date: 20181010
  Serious: No
  Sender: FDA-Public Use
  Company Number: LV-PFIZER INC-2018326610

PATIENT
  Age: 64 Year
  Sex: Female

DRUGS (4)
  1. OEL VIGANTOL [Concomitant]
     Dosage: UNK
  2. EUTHYROX [Concomitant]
     Active Substance: LEVOTHYROXINE SODIUM
     Dosage: 25 UKG
  3. SOLU?MEDROL [Suspect]
     Active Substance: METHYLPREDNISOLONE SODIUM SUCCINATE
     Indication: ADRENOCORTICAL STEROID THERAPY
     Dosage: 3 CYCLES, EVERY TIME FOR 3 DAYS , TOTAL 4.5 G. IN THREE MONTS
     Route: 042
     Dates: start: 201701, end: 201703
  4. SOLU?MEDROL [Suspect]
     Active Substance: METHYLPREDNISOLONE SODIUM SUCCINATE
     Dosage: 1X WEEKS, 8000 MG
     Route: 042
     Dates: start: 201707

REACTIONS (2)
  - Glucose tolerance impaired [Unknown]
  - Drug ineffective [Unknown]
